FAERS Safety Report 4268556-X (Version None)
Quarter: 2004Q1

REPORT INFORMATION
  Report Type: 
  Country: None (occurrence: None)
  Receive Date: 20040108
  Receipt Date: 20031229
  Transmission Date: 20041129
  Serious: Yes (Hospitalization)
  Sender: FDA-Public Use
  Company Number: US-JNJFOC-20031205435

PATIENT
  Age: 74 Year
  Sex: Female

DRUGS (6)
  1. INFLIXIMAB (INFLIXIMAB, RECOMBINANT) LYOPHILIZED POWDER [Suspect]
     Indication: RHEUMATOID ARTHRITIS
     Dosage: INTRAVENOUS
     Route: 042
     Dates: start: 20010507
  2. METHOTREXATE [Concomitant]
  3. FOSAMAX (FOSAMAX) [Concomitant]
  4. LEVOXYL [Concomitant]
  5. CITRACAL (CALCIUM CITRATE) [Concomitant]
  6. PREDNISONE [Concomitant]

REACTIONS (3)
  - ACUTE RESPIRATORY FAILURE [None]
  - DRUG TOXICITY [None]
  - LUNG INFILTRATION [None]
